FAERS Safety Report 8308125-5 (Version None)
Quarter: 2012Q2

REPORT INFORMATION
  Report Type: 
  Country: None (occurrence: None)
  Receive Date: 20120424
  Receipt Date: 20120411
  Transmission Date: 20120825
  Serious: Yes (Other)
  Sender: FDA-Public Use
  Company Number: JP-ROCHE-1051276

PATIENT
  Sex: Male

DRUGS (16)
  1. PREDNISOLONE [Concomitant]
     Route: 048
     Dates: start: 20081203
  2. RAMOSETRON HYDROCHLORIDE [Concomitant]
     Indication: IRRITABLE BOWEL SYNDROME
     Route: 048
     Dates: start: 20081105
  3. ACTEMRA [Suspect]
     Indication: RHEUMATOID ARTHRITIS
     Route: 041
     Dates: start: 20081105, end: 20090305
  4. SELBEX [Concomitant]
     Indication: GASTRITIS
     Route: 048
  5. RHEUMATREX [Concomitant]
     Indication: RHEUMATOID ARTHRITIS
     Dosage: WEDNESDAY AND THURSDAY
     Route: 048
  6. ALENDRONATE SODIUM [Concomitant]
     Indication: OSTEOPOROSIS
     Route: 048
  7. ONEALFA [Concomitant]
     Indication: OSTEOPOROSIS
     Route: 048
  8. LOXONIN [Concomitant]
     Indication: RHEUMATOID ARTHRITIS
     Route: 061
     Dates: start: 20090305
  9. VOLTAREN [Concomitant]
     Indication: RHEUMATOID ARTHRITIS
     Route: 048
  10. ALLOPURINOL [Concomitant]
     Indication: GOUT
     Route: 048
  11. ACTEMRA [Suspect]
     Route: 041
     Dates: start: 20100608, end: 20101005
  12. APLACE [Concomitant]
     Indication: GASTRITIS
     Route: 048
     Dates: end: 20081203
  13. ACTEMRA [Suspect]
     Route: 041
     Dates: start: 20090516, end: 20091226
  14. PREDNISOLONE [Concomitant]
     Indication: RHEUMATOID ARTHRITIS
     Route: 048
     Dates: start: 20080917, end: 20081202
  15. FOLIAMIN [Concomitant]
     Indication: PROPHYLAXIS
     Route: 048
  16. IRSOGLADINE MALEATE [Concomitant]
     Indication: GASTRITIS
     Route: 048
     Dates: start: 20081203, end: 20090204

REACTIONS (1)
  - SURGERY [None]
